FAERS Safety Report 8826233 (Version 1)
Quarter: 2012Q4

REPORT INFORMATION
  Report Type: 
  Country: AT (occurrence: AT)
  Receive Date: 20121005
  Receipt Date: 20121005
  Transmission Date: 20130627
  Serious: Yes (Life-Threatening, Other)
  Sender: FDA-Public Use
  Company Number: AT-PFIZER INC-2012243655

PATIENT
  Age: 41 Year
  Sex: Male

DRUGS (3)
  1. ECALTA [Suspect]
     Dosage: UNK
     Dates: start: 201208, end: 201208
  2. MEROPENEM [Concomitant]
  3. DIFLUCAN [Concomitant]

REACTIONS (5)
  - Cardiac arrest [Recovered/Resolved]
  - Vasodilatation [Unknown]
  - Hepatic failure [Not Recovered/Not Resolved]
  - Coma [Not Recovered/Not Resolved]
  - Candiduria [Unknown]
